FAERS Safety Report 7311034-1 (Version None)
Quarter: 2011Q1

REPORT INFORMATION
  Report Type: 
  Country: None (occurrence: None)
  Receive Date: 20110214
  Receipt Date: 20110201
  Transmission Date: 20110831
  Serious: Yes (Other)
  Sender: FDA-Public Use
  Company Number: 2011-0181

PATIENT
  Age: 11 Year
  Sex: Female
  Weight: 29 kg

DRUGS (3)
  1. INCRELEX [Suspect]
     Indication: GROWTH RETARDATION
     Dosage: 0.12 MG/KG (0.12 MG/KG, 1 IN 1 D), SUBCUTANEOUS; 0.24 MG/KG (0.12 MG/KG, 2 IN 1 D), SUBCUTANEOUS
     Route: 058
     Dates: start: 20090528, end: 20101117
  2. INCRELEX [Suspect]
     Indication: GROWTH RETARDATION
     Dosage: 0.12 MG/KG (0.12 MG/KG, 1 IN 1 D), SUBCUTANEOUS; 0.24 MG/KG (0.12 MG/KG, 2 IN 1 D), SUBCUTANEOUS
     Route: 058
     Dates: start: 20101130, end: 20110117
  3. THYROID HORMONE (THYROID HORMONES) [Concomitant]

REACTIONS (5)
  - BONE MARROW DISORDER [None]
  - VULVAL ABSCESS [None]
  - LEUKOPENIA [None]
  - ANAEMIA [None]
  - THROMBOCYTOPENIA [None]
